FAERS Safety Report 5789165-7 (Version None)
Quarter: 2008Q2

REPORT INFORMATION
  Report Type: 
  Country: None (occurrence: None)
  Receive Date: 20080626
  Receipt Date: 20080617
  Transmission Date: 20081010
  Serious: Yes (Death)
  Sender: FDA-Public Use
  Company Number: JP-ABBOTT-08P-087-0453396-00

PATIENT
  Age: 78 Year
  Sex: Male

DRUGS (8)
  1. LEUPLIN SR FOR INJECTION KIT [Suspect]
     Indication: PROSTATE CANCER STAGE IV
     Route: 058
     Dates: start: 20070222, end: 20070817
  2. BICALUTAMIDE [Concomitant]
     Indication: PROSTATE CANCER STAGE IV
     Route: 048
     Dates: end: 20070621
  3. FLUTAMIDE [Concomitant]
     Indication: PROSTATE CANCER STAGE IV
     Route: 048
     Dates: start: 20070719, end: 20070817
  4. ZOLEDRONIC ACID [Concomitant]
     Indication: PROSTATE CANCER STAGE IV
     Route: 042
     Dates: start: 20070426
  5. ETODOLAC [Concomitant]
     Indication: METASTATIC PAIN
     Route: 048
  6. TEPRENONE [Concomitant]
     Indication: METASTATIC PAIN
     Route: 048
  7. ESTRAMUSTINE PHOSPHATE SODIUM [Concomitant]
     Indication: PROSTATE CANCER STAGE IV
     Route: 048
     Dates: start: 20070817, end: 20070930
  8. BETAMETHASONE [Concomitant]
     Indication: PROSTATE CANCER STAGE IV
     Route: 048
     Dates: start: 20071001, end: 20071212

REACTIONS (1)
  - PROSTATE CANCER STAGE IV [None]
